FAERS Safety Report 6219639-6 (Version None)
Quarter: 2009Q2

REPORT INFORMATION
  Report Type: 
  Country: None (occurrence: None)
  Receive Date: 20090609
  Receipt Date: 20090528
  Transmission Date: 20091009
  Serious: Yes (Other)
  Sender: FDA-Public Use
  Company Number: US-PFIZER INC-2009220869

PATIENT
  Sex: Female
  Weight: 77 kg

DRUGS (6)
  1. PROVERA [Suspect]
     Indication: HORMONE REPLACEMENT THERAPY
     Dosage: 2.5-10MG
     Route: 048
     Dates: start: 19870101, end: 19950101
  2. PREMARIN [Suspect]
     Indication: HORMONE REPLACEMENT THERAPY
     Dosage: UNK
     Dates: start: 19870101, end: 19950101
  3. PREMPRO [Suspect]
     Indication: HORMONE REPLACEMENT THERAPY
     Dosage: UNK
     Dates: start: 19950101, end: 20010101
  4. TRIAMTERENE [Concomitant]
     Indication: HYPERTENSION
     Dosage: UNK
     Dates: start: 19720101
  5. INDERAL [Concomitant]
     Indication: ATRIAL TACHYCARDIA
     Dosage: UNK
     Dates: start: 19670101
  6. DIGOXIN [Concomitant]
     Indication: ATRIAL TACHYCARDIA
     Dosage: UNK
     Dates: start: 19670101

REACTIONS (1)
  - BREAST CANCER FEMALE [None]
